FAERS Safety Report 6438852-6 (Version None)
Quarter: 2009Q4

REPORT INFORMATION
  Report Type: 
  Country: None (occurrence: None)
  Receive Date: 20091111
  Receipt Date: 20091111
  Transmission Date: 20100525
  Serious: No
  Sender: FDA-Public Use
  Company Number: None

PATIENT
  Sex: Male

DRUGS (1)
  1. WELLBUTRIN XL [Suspect]
     Indication: DEPRESSION
     Dosage: 150 MG QAM PO
     Route: 048
     Dates: start: 20051101

REACTIONS (2)
  - TREATMENT NONCOMPLIANCE [None]
  - UNEVALUABLE EVENT [None]
